FAERS Safety Report 9357655 (Version 1)
Quarter: 2013Q2

REPORT INFORMATION
  Report Type: Spontaneous
  Country: US (occurrence: US)
  Receive Date: 20130620
  Receipt Date: 20130620
  Transmission Date: 20140414
  Serious: No
  Sender: FDA-Public Use
  Company Number: US-BAYER-2013-075607

PATIENT
  Age: 74 Year
  Sex: Male
  Weight: 89.8 kg

DRUGS (6)
  1. ALEVE CAPLET [Suspect]
     Indication: ANALGESIC THERAPY
     Dosage: 1 DF, ONCE
     Route: 048
     Dates: start: 2012, end: 2012
  2. GLIPIZIDE [Concomitant]
  3. LOSARTAN [Concomitant]
  4. POTASSIUM [Concomitant]
  5. FUROSEMIDE [Concomitant]
  6. SINGULAIR [Concomitant]

REACTIONS (2)
  - Drug ineffective [Recovered/Resolved]
  - Restless legs syndrome [Recovered/Resolved]
